FAERS Safety Report 11376139 (Version 4)
Quarter: 2015Q3

REPORT INFORMATION
  Report Type: Spontaneous
  Country: PT (occurrence: PT)
  Receive Date: 20150813
  Receipt Date: 20150915
  Transmission Date: 20151125
  Serious: Yes (Death, Hospitalization, Other)
  Sender: FDA-Public Use
  Company Number: PT-GILEAD-2015-0166171

PATIENT
  Age: 42 Year
  Sex: Male

DRUGS (8)
  1. SPIRONOLACTONE. [Concomitant]
     Active Substance: SPIRONOLACTONE
  2. DIAZEPAM. [Concomitant]
     Active Substance: DIAZEPAM
     Indication: PRODUCT USED FOR UNKNOWN INDICATION
  3. RIFAXIMINE [Concomitant]
  4. LACTULOSE. [Concomitant]
     Active Substance: LACTULOSE
  5. HARVONI [Suspect]
     Active Substance: LEDIPASVIR\SOFOSBUVIR
     Indication: HEPATITIS C
     Dosage: UNK
     Route: 065
     Dates: start: 20150713
  6. METHADONE [Concomitant]
     Active Substance: METHADONE HYDROCHLORIDE
     Indication: DRUG WITHDRAWAL MAINTENANCE THERAPY
  7. FUROSEMIDE. [Concomitant]
     Active Substance: FUROSEMIDE
  8. MIRTAZAPINE. [Concomitant]
     Active Substance: MIRTAZAPINE

REACTIONS (9)
  - Abdominal pain [Unknown]
  - Lactic acidosis [Unknown]
  - Shock haemorrhagic [Fatal]
  - Intestinal dilatation [Unknown]
  - Peritonitis [Recovered/Resolved]
  - Intestinal ischaemia [Fatal]
  - Septic shock [Fatal]
  - Gastrointestinal oedema [Unknown]
  - Pyrexia [Unknown]

NARRATIVE: CASE EVENT DATE: 2015
